FAERS Safety Report 6013989-4 (Version None)
Quarter: 2008Q4

REPORT INFORMATION
  Report Type: 
  Country: None (occurrence: None)
  Receive Date: 20081219
  Receipt Date: 20081209
  Transmission Date: 20090506
  Serious: Yes (Hospitalization)
  Sender: FDA-Public Use
  Company Number: US-JNJCH-2008057540

PATIENT
  Age: 13 Month
  Sex: Male
  Weight: 11.8 kg

DRUGS (4)
  1. CHILDREN'S ZYRTEC ALLERGY SYRUP [Suspect]
     Indication: ALLERGY PROPHYLAXIS
     Route: 048
  2. MOTRIN [Suspect]
     Indication: TEETHING
     Route: 048
     Dates: start: 20081205, end: 20081206
  3. TYLENOL (CAPLET) [Suspect]
     Indication: TEETHING
     Route: 048
  4. CHILDREN'S MOTRIN [Suspect]
     Indication: TEETHING
     Route: 048

REACTIONS (1)
  - REACTION TO DRUG EXCIPIENTS [None]
